FAERS Safety Report 6124915-1 (Version None)
Quarter: 2009Q1

REPORT INFORMATION
  Report Type: 
  Country: None (occurrence: None)
  Receive Date: 20090319
  Receipt Date: 20090314
  Transmission Date: 20090719
  Serious: No
  Sender: FDA-Public Use
  Company Number: US-B.I. PHARMACEUTICALS,INC./RIDGEFIELD-2009-BP-03251BP

PATIENT
  Age: 80 Year
  Sex: Male

DRUGS (2)
  1. MIRAPEX [Suspect]
     Indication: RESTLESS LEGS SYNDROME
     Dosage: .125MG
     Route: 048
     Dates: start: 20090304, end: 20090308
  2. MIRAPEX [Suspect]
     Dosage: .25MG
     Route: 048
     Dates: start: 20090309, end: 20090311

REACTIONS (1)
  - FATIGUE [None]
